FAERS Safety Report 8983768 (Version 4)
Quarter: 2014Q2

REPORT INFORMATION
  Report Type: Report from Study
  Country: US (occurrence: US)
  Receive Date: 20121224
  Receipt Date: 20140423
  Transmission Date: 20141212
  Serious: Yes (Other)
  Sender: FDA-Public Use
  Company Number: US-ROCHE-1167174

PATIENT
  Age: 50 Year
  Sex: Male
  Weight: 153.91 kg

DRUGS (20)
  1. VISMODEGIB [Suspect]
     Indication: BASAL CELL CARCINOMA
     Route: 048
     Dates: start: 20120716, end: 20121128
  2. NEBIVOLOL HYDROCHLORIDE [Concomitant]
     Indication: ESSENTIAL HYPERTENSION
     Route: 048
  3. HYDROCHLOROTHIAZIDE [Concomitant]
     Indication: ESSENTIAL HYPERTENSION
     Route: 048
     Dates: end: 20131017
  4. LISINOPRIL [Concomitant]
     Indication: ESSENTIAL HYPERTENSION
     Route: 048
  5. LANTUS [Concomitant]
     Indication: TYPE 2 DIABETES MELLITUS
     Route: 058
     Dates: end: 20121010
  6. AMLODIPINE [Concomitant]
     Indication: ESSENTIAL HYPERTENSION
     Route: 048
  7. METFORMIN [Concomitant]
     Indication: TYPE 2 DIABETES MELLITUS
     Route: 048
     Dates: end: 20130904
  8. GLIBENCLAMIDE [Concomitant]
     Indication: TYPE 2 DIABETES MELLITUS
     Route: 048
     Dates: end: 20121010
  9. VITAMIN B12 [Concomitant]
     Indication: FATIGUE
     Route: 048
     Dates: start: 20121001, end: 20130109
  10. INSULIN NPH [Concomitant]
     Indication: TYPE 2 DIABETES MELLITUS
     Route: 058
     Dates: start: 20121010, end: 20121130
  11. IMODIUM [Concomitant]
     Indication: DIARRHOEA
     Route: 048
     Dates: end: 20130206
  12. NOVOLIN [Concomitant]
     Indication: TYPE 2 DIABETES MELLITUS
     Route: 058
     Dates: start: 20121130
  13. KEFLEX [Concomitant]
     Indication: INFECTION
     Route: 048
     Dates: start: 20130314, end: 20130328
  14. KEFLEX [Concomitant]
     Indication: INFECTION PROPHYLAXIS
     Route: 048
     Dates: start: 20130404, end: 20130414
  15. KEFLEX [Concomitant]
     Route: 048
     Dates: start: 20130108, end: 20130113
  16. VALIUM [Concomitant]
     Indication: ANXIETY
     Route: 048
     Dates: start: 20130314
  17. MUPIROCIN [Concomitant]
     Indication: INFECTION
     Route: 061
     Dates: start: 20130109, end: 20130416
  18. VICODIN [Concomitant]
     Indication: PAIN
     Route: 048
     Dates: start: 20130109
  19. LASIX [Concomitant]
     Indication: HYPERTENSION
     Route: 048
     Dates: start: 20131017
  20. BYSTOLIC [Concomitant]
     Indication: ESSENTIAL HYPERTENSION
     Route: 048

REACTIONS (1)
  - Renal failure acute [Recovered/Resolved]
